FAERS Safety Report 9350032 (Version 1)
Quarter: 2013Q2

REPORT INFORMATION
  Report Type: Spontaneous
  Country: ES (occurrence: ES)
  Receive Date: 20130615
  Receipt Date: 20130615
  Transmission Date: 20140414
  Serious: Yes (Hospitalization)
  Sender: FDA-Public Use
  Company Number: ES-ROCHE-1236654

PATIENT
  Age: 76 Year
  Sex: Male

DRUGS (5)
  1. XELODA [Suspect]
     Indication: ADENOCARCINOMA GASTRIC
     Route: 048
     Dates: start: 20130405, end: 20130424
  2. OXALIPLATIN [Interacting]
     Indication: ADENOCARCINOMA GASTRIC
     Route: 042
     Dates: start: 20130405, end: 20130426
  3. EPIRUBICIN [Interacting]
     Indication: ADENOCARCINOMA GASTRIC
     Route: 042
     Dates: start: 20130405, end: 20130426
  4. TARDYFERON (SPAIN) [Concomitant]
     Route: 048
  5. CLEXANE [Concomitant]
     Route: 058

REACTIONS (5)
  - Renal failure acute [Recovered/Resolved]
  - Leukopenia [Recovered/Resolved]
  - Vomiting [Recovered/Resolved]
  - Diarrhoea [Recovered/Resolved]
  - Drug interaction [Unknown]
